FAERS Safety Report 8396700-1 (Version None)
Quarter: 2012Q2

REPORT INFORMATION
  Report Type: 
  Country: None (occurrence: None)
  Receive Date: 20120530
  Receipt Date: 20120529
  Transmission Date: 20120825
  Serious: No
  Sender: FDA-Public Use
  Company Number: US-BAYER-2012-053242

PATIENT
  Sex: Female

DRUGS (2)
  1. BEYAZ [Suspect]
  2. NATAZIA [Suspect]

REACTIONS (3)
  - ABDOMINAL DISTENSION [None]
  - MENSTRUATION DELAYED [None]
  - ADVERSE EVENT [None]
